FAERS Safety Report 8136151-8 (Version None)
Quarter: 2012Q1

REPORT INFORMATION
  Report Type: 
  Country: None (occurrence: None)
  Receive Date: 20120214
  Receipt Date: 20120207
  Transmission Date: 20120608
  Serious: Yes (Other)
  Sender: FDA-Public Use
  Company Number: PHHY2012DE010326

PATIENT
  Age: 31 Year
  Sex: Male

DRUGS (1)
  1. DOXEPIN HCL [Suspect]
     Indication: DEPRESSION
     Dosage: 200 MG, UNK

REACTIONS (6)
  - DYSKINESIA [None]
  - EXTRAPYRAMIDAL DISORDER [None]
  - AKATHISIA [None]
  - RESTLESSNESS [None]
  - TIC [None]
  - DYSTONIA [None]
